FAERS Safety Report 7414549-0 (Version None)
Quarter: 2011Q1

REPORT INFORMATION
  Report Type: 
  Country: None (occurrence: None)
  Receive Date: 20110302
  Receipt Date: 20101111
  Transmission Date: 20110831
  Serious: No
  Sender: FDA-Public Use
  Company Number: 021822

PATIENT
  Sex: Female
  Weight: 65 kg

DRUGS (6)
  1. LOMOTIL /00034001/ [Concomitant]
  2. MERCAPTOPURINE [Concomitant]
  3. MULTI-VITAMINS [Concomitant]
  4. CIMZIA [Suspect]
     Indication: CROHN'S DISEASE
     Dosage: (DOSE: 2 SHOTS SUBCUTANEOUS)
     Route: 058
     Dates: start: 20100821
  5. ZYRTEC [Concomitant]
  6. NEXIUM [Concomitant]

REACTIONS (3)
  - CROHN'S DISEASE [None]
  - WEIGHT DECREASED [None]
  - DRUG INEFFECTIVE [None]
